FAERS Safety Report 18586774 (Version 1)
Quarter: 2020Q4

REPORT INFORMATION
  Report Type: Spontaneous
  Country: US (occurrence: US)
  Receive Date: 20201207
  Receipt Date: 20201207
  Transmission Date: 20210114
  Serious: Yes (Other)
  Sender: FDA-Public Use
  Company Number: US-TEVA-2020-US-1856396

PATIENT
  Age: 70 Year
  Sex: Female

DRUGS (3)
  1. AMLODIPINE [Concomitant]
     Active Substance: AMLODIPINE BESYLATE
     Dosage: SPLITS HER TABLETS IN HALF AND TAKES 2.5 MG AT NIGHT
  2. BENAZEPRIL HYDROCHLORIDE. [Concomitant]
     Active Substance: BENAZEPRIL HYDROCHLORIDE
     Dosage: 40 MG OF THE BENAZEPRIL HYDROCHLORIDE IN THE AM AND 20 MG AT NIGHT
  3. TRIAMTERENE/HYDROCHLOROTHIAZIDE TEVA [Suspect]
     Active Substance: HYDROCHLOROTHIAZIDE\TRIAMTERENE
     Dosage: 37.5/25 MG
     Route: 065

REACTIONS (6)
  - Dizziness [Not Recovered/Not Resolved]
  - Feeling abnormal [Unknown]
  - Squamous cell carcinoma of skin [Not Recovered/Not Resolved]
  - Heart rate irregular [Not Recovered/Not Resolved]
  - Abdominal pain upper [Not Recovered/Not Resolved]
  - Oedema peripheral [Not Recovered/Not Resolved]
